FAERS Safety Report 4737126-9 (Version None)
Quarter: 2005Q3

REPORT INFORMATION
  Report Type: 
  Country: None (occurrence: None)
  Receive Date: 20050728
  Receipt Date: 20050519
  Transmission Date: 20060218
  Serious: No
  Sender: FDA-Public Use
  Company Number: 200514949US

PATIENT

DRUGS (1)
  1. KETEK [Suspect]

REACTIONS (1)
  - DYSGEUSIA [None]
